FAERS Safety Report 5010329-4 (Version None)
Quarter: 2006Q2

REPORT INFORMATION
  Report Type: 
  Country: None (occurrence: None)
  Receive Date: 20060404
  Receipt Date: 20051219
  Transmission Date: 20061013
  Serious: No
  Sender: FDA-Public Use
  Company Number: US200512003529

PATIENT
  Age: 74 Year
  Sex: Female

DRUGS (2)
  1. CYMBALTA [Suspect]
     Indication: NEURALGIA
     Dosage: 60 MG, ORAL
     Route: 048
     Dates: start: 20040101, end: 20051207
  2. ACTOS [Concomitant]

REACTIONS (10)
  - BACK INJURY [None]
  - DRUG INEFFECTIVE [None]
  - EAR INFECTION [None]
  - FALL [None]
  - FEELING HOT [None]
  - FLUSHING [None]
  - HEADACHE [None]
  - HYPERHIDROSIS [None]
  - OCCUPATIONAL PROBLEM ENVIRONMENTAL [None]
  - SKIN DISCOLOURATION [None]
